FAERS Safety Report 5319652-7 (Version None)
Quarter: 2007Q2

REPORT INFORMATION
  Report Type: 
  Country: None (occurrence: None)
  Receive Date: 20070501
  Receipt Date: 20070427
  Transmission Date: 20071010
  Serious: No
  Sender: FDA-Public Use
  Company Number: 0704-254

PATIENT
  Age: 64 Year
  Sex: Female
  Weight: 31.7518 kg

DRUGS (7)
  1. DUONEB [Suspect]
     Indication: ASTHMA
     Dosage: BID, NEBULIZED
  2. COMBIVENT [Concomitant]
  3. ALBUTEROL [Concomitant]
  4. ZYRTEC [Concomitant]
  5. SINGULAIR [Concomitant]
  6. SPIRIVA [Concomitant]
  7. ALPRAZOLAM [Concomitant]

REACTIONS (5)
  - ABDOMINAL PAIN UPPER [None]
  - DISCOMFORT [None]
  - DYSPNOEA [None]
  - FLATULENCE [None]
  - REFUSAL OF TREATMENT BY PATIENT [None]
